FAERS Safety Report 5823320-2 (Version None)
Quarter: 2008Q3

REPORT INFORMATION
  Report Type: 
  Country: None (occurrence: None)
  Receive Date: 20080725
  Receipt Date: 20070621
  Transmission Date: 20090109
  Serious: No
  Sender: FDA-Public Use
  Company Number: US-AMGEN-KDL230706

PATIENT
  Sex: Female
  Weight: 61.7 kg

DRUGS (7)
  1. PROCRIT [Suspect]
     Indication: MYELODYSPLASTIC SYNDROME
     Dates: start: 20050101
  2. VASOTEC [Concomitant]
  3. NORVASC [Concomitant]
  4. IMDUR [Concomitant]
  5. HYTRIN [Concomitant]
  6. AMBIEN [Concomitant]
  7. XANAX [Concomitant]

REACTIONS (3)
  - CONTUSION [None]
  - DYSPNOEA [None]
  - FATIGUE [None]
